FAERS Safety Report 25146135 (Version 1)
Quarter: 2025Q2

REPORT INFORMATION
  Report Type: Spontaneous
  Country: CA (occurrence: CA)
  Receive Date: 20250401
  Receipt Date: 20250401
  Transmission Date: 20250717
  Serious: Yes (Death, Other)
  Sender: BRISTOL MYERS SQUIBB
  Company Number: CA-BRISTOL-MYERS SQUIBB COMPANY-2025-042906

PATIENT
  Age: 40 Year
  Sex: Female

DRUGS (279)
  1. ORENCIA [Suspect]
     Active Substance: ABATACEPT
     Indication: Rheumatoid arthritis
     Route: 058
  2. ORENCIA [Suspect]
     Active Substance: ABATACEPT
  3. ORENCIA [Suspect]
     Active Substance: ABATACEPT
     Route: 042
  4. ORENCIA [Suspect]
     Active Substance: ABATACEPT
     Route: 042
  5. ORENCIA [Suspect]
     Active Substance: ABATACEPT
  6. ORENCIA [Suspect]
     Active Substance: ABATACEPT
     Route: 042
  7. ORENCIA [Suspect]
     Active Substance: ABATACEPT
  8. ORENCIA [Suspect]
     Active Substance: ABATACEPT
     Route: 042
  9. ORENCIA [Suspect]
     Active Substance: ABATACEPT
     Route: 042
  10. TRIAMCINOLONE ACETONIDE [Suspect]
     Active Substance: TRIAMCINOLONE ACETONIDE
     Indication: Rheumatoid arthritis
     Route: 014
  11. TRIAMCINOLONE ACETONIDE [Suspect]
     Active Substance: TRIAMCINOLONE ACETONIDE
     Route: 014
  12. ORENCIA [Suspect]
     Active Substance: ABATACEPT
     Indication: Rheumatoid arthritis
  13. ACETAMINOPHEN [Concomitant]
     Active Substance: ACETAMINOPHEN
     Indication: Rheumatoid arthritis
  14. ACETAMINOPHEN [Concomitant]
     Active Substance: ACETAMINOPHEN
  15. ACETAMINOPHEN [Concomitant]
     Active Substance: ACETAMINOPHEN
  16. ACETAMINOPHEN [Concomitant]
     Active Substance: ACETAMINOPHEN
  17. ACETAMINOPHEN\CODEINE PHOSPHATE [Concomitant]
     Active Substance: ACETAMINOPHEN\CODEINE PHOSPHATE
     Indication: Product used for unknown indication
  18. ACETAMINOPHEN\CODEINE PHOSPHATE [Concomitant]
     Active Substance: ACETAMINOPHEN\CODEINE PHOSPHATE
  19. ACTEMRA [Concomitant]
     Active Substance: TOCILIZUMAB
     Indication: Rheumatoid arthritis
     Route: 061
  20. ACTEMRA [Concomitant]
     Active Substance: TOCILIZUMAB
     Route: 042
  21. ACTEMRA [Concomitant]
     Active Substance: TOCILIZUMAB
     Route: 042
  22. ACTEMRA [Concomitant]
     Active Substance: TOCILIZUMAB
     Route: 042
  23. ACTEMRA [Concomitant]
     Active Substance: TOCILIZUMAB
     Route: 042
  24. ACTEMRA [Concomitant]
     Active Substance: TOCILIZUMAB
     Route: 042
  25. ACTEMRA [Concomitant]
     Active Substance: TOCILIZUMAB
  26. ADALIMUMAB [Concomitant]
     Active Substance: ADALIMUMAB
     Indication: Rheumatoid arthritis
     Route: 058
  27. ADALIMUMAB [Concomitant]
     Active Substance: ADALIMUMAB
  28. ADALIMUMAB [Concomitant]
     Active Substance: ADALIMUMAB
     Route: 058
  29. ADALIMUMAB [Concomitant]
     Active Substance: ADALIMUMAB
     Route: 058
  30. AIMOVIG [Concomitant]
     Active Substance: ERENUMAB-AOOE
     Indication: Migraine
  31. AIMOVIG [Concomitant]
     Active Substance: ERENUMAB-AOOE
  32. ALENDRONATE SODIUM [Concomitant]
     Active Substance: ALENDRONATE SODIUM
     Indication: Rheumatoid arthritis
     Route: 048
  33. ALENDRONATE SODIUM [Concomitant]
     Active Substance: ALENDRONATE SODIUM
  34. ALENDRONATE SODIUM [Concomitant]
     Active Substance: ALENDRONATE SODIUM
  35. ALENDRONIC ACID [Concomitant]
     Active Substance: ALENDRONIC ACID
     Indication: Rheumatoid arthritis
  36. ALENDRONIC ACID [Concomitant]
     Active Substance: ALENDRONIC ACID
     Route: 048
  37. DICLOFENAC POTASSIUM [Concomitant]
     Active Substance: DICLOFENAC POTASSIUM
     Indication: Rheumatoid arthritis
  38. DICLOFENAC POTASSIUM [Concomitant]
     Active Substance: DICLOFENAC POTASSIUM
  39. LEFLUNOMIDE [Concomitant]
     Active Substance: LEFLUNOMIDE
     Indication: Rheumatoid arthritis
     Route: 048
  40. LEFLUNOMIDE [Concomitant]
     Active Substance: LEFLUNOMIDE
  41. LEFLUNOMIDE [Concomitant]
     Active Substance: LEFLUNOMIDE
  42. LEFLUNOMIDE [Concomitant]
     Active Substance: LEFLUNOMIDE
  43. PREDNISONE [Concomitant]
     Active Substance: PREDNISONE
     Indication: Rheumatoid arthritis
     Route: 048
  44. PREDNISONE [Concomitant]
     Active Substance: PREDNISONE
     Route: 048
  45. PREDNISONE [Concomitant]
     Active Substance: PREDNISONE
     Route: 048
  46. PREDNISONE [Concomitant]
     Active Substance: PREDNISONE
     Route: 048
  47. PREDNISONE [Concomitant]
     Active Substance: PREDNISONE
     Route: 048
  48. PREDNISONE [Concomitant]
     Active Substance: PREDNISONE
     Route: 048
  49. APREMILAST [Concomitant]
     Active Substance: APREMILAST
     Indication: Product used for unknown indication
  50. APREMILAST [Concomitant]
     Active Substance: APREMILAST
  51. APREMILAST [Concomitant]
     Active Substance: APREMILAST
  52. ARAVA [Concomitant]
     Active Substance: LEFLUNOMIDE
     Indication: Rheumatoid arthritis
     Route: 048
  53. ARAVA [Concomitant]
     Active Substance: LEFLUNOMIDE
  54. ATOMOXETINE [Concomitant]
     Active Substance: ATOMOXETINE
     Indication: Migraine
  55. ATOMOXETINE [Concomitant]
     Active Substance: ATOMOXETINE
  56. AZATHIOPRINE SODIUM [Concomitant]
     Active Substance: AZATHIOPRINE SODIUM
     Indication: Product used for unknown indication
  57. BERINERT [Concomitant]
     Active Substance: HUMAN C1-ESTERASE INHIBITOR
     Indication: Product used for unknown indication
  58. BOTULINUM TOXIN TYPE A [Concomitant]
     Active Substance: BOTULINUM TOXIN TYPE A
     Indication: Product used for unknown indication
  59. BUTRANS [Concomitant]
     Active Substance: BUPRENORPHINE
     Indication: Product used for unknown indication
  60. CALCIUM GLUBIONATE [Concomitant]
     Active Substance: CALCIUM GLUBIONATE
     Indication: Product used for unknown indication
     Route: 016
  61. CANDESARTAN [Concomitant]
     Active Substance: CANDESARTAN
     Indication: Migraine
     Route: 048
  62. CELEBREX [Concomitant]
     Active Substance: CELECOXIB
     Indication: Product used for unknown indication
     Route: 048
  63. CELEBREX [Concomitant]
     Active Substance: CELECOXIB
     Route: 048
  64. CELEBREX [Concomitant]
     Active Substance: CELECOXIB
  65. CELEBREX [Concomitant]
     Active Substance: CELECOXIB
     Route: 048
  66. CERTOLIZUMAB PEGOL [Concomitant]
     Active Substance: CERTOLIZUMAB PEGOL
     Indication: Rheumatoid arthritis
     Route: 016
  67. CERTOLIZUMAB PEGOL [Concomitant]
     Active Substance: CERTOLIZUMAB PEGOL
     Route: 058
  68. CERTOLIZUMAB PEGOL [Concomitant]
     Active Substance: CERTOLIZUMAB PEGOL
     Route: 058
  69. CERTOLIZUMAB PEGOL [Concomitant]
     Active Substance: CERTOLIZUMAB PEGOL
  70. CHLORHEXIDINE GLUCONATE [Concomitant]
     Active Substance: CHLORHEXIDINE GLUCONATE
     Indication: Product used for unknown indication
     Route: 061
  71. CHLORHEXIDINE GLUCONATE [Concomitant]
     Active Substance: CHLORHEXIDINE GLUCONATE
  72. CIMZIA [Concomitant]
     Active Substance: CERTOLIZUMAB PEGOL
     Indication: Rheumatoid arthritis
     Route: 005
  73. CIMZIA [Concomitant]
     Active Substance: CERTOLIZUMAB PEGOL
     Route: 058
  74. CIMZIA [Concomitant]
     Active Substance: CERTOLIZUMAB PEGOL
     Route: 058
  75. CIMZIA [Concomitant]
     Active Substance: CERTOLIZUMAB PEGOL
  76. CIMZIA [Concomitant]
     Active Substance: CERTOLIZUMAB PEGOL
     Route: 058
  77. CIMZIA [Concomitant]
     Active Substance: CERTOLIZUMAB PEGOL
     Route: 058
  78. CIMZIA [Concomitant]
     Active Substance: CERTOLIZUMAB PEGOL
     Route: 058
  79. CIMZIA [Concomitant]
     Active Substance: CERTOLIZUMAB PEGOL
     Route: 016
  80. COSENTYX [Concomitant]
     Active Substance: SECUKINUMAB
     Indication: Rheumatoid arthritis
  81. COSENTYX [Concomitant]
     Active Substance: SECUKINUMAB
     Indication: Psoriatic arthropathy
  82. DESOGESTREL\ETHINYL ESTRADIOL [Concomitant]
     Active Substance: DESOGESTREL\ETHINYL ESTRADIOL
     Indication: Product used for unknown indication
  83. DESOXIMETASONE [Concomitant]
     Active Substance: DESOXIMETASONE
     Indication: Rheumatoid arthritis
     Route: 058
  84. DESOXIMETASONE [Concomitant]
     Active Substance: DESOXIMETASONE
  85. DESOXIMETASONE [Concomitant]
     Active Substance: DESOXIMETASONE
     Route: 048
  86. DESOXIMETASONE [Concomitant]
     Active Substance: DESOXIMETASONE
     Route: 058
  87. DICLOFENAC DIETHYLAMINE [Concomitant]
     Active Substance: DICLOFENAC DIETHYLAMINE
     Indication: Product used for unknown indication
  88. DICLOFENAC SODIUM [Concomitant]
     Active Substance: DICLOFENAC SODIUM
     Indication: Product used for unknown indication
  89. DICLOFENAC SODIUM [Concomitant]
     Active Substance: DICLOFENAC SODIUM
     Route: 058
  90. DICLOFENAC SODIUM [Concomitant]
     Active Substance: DICLOFENAC SODIUM
  91. DOMPERIDONE MALEATE [Concomitant]
     Active Substance: DOMPERIDONE MALEATE
     Indication: Product used for unknown indication
  92. ENBREL [Concomitant]
     Active Substance: ETANERCEPT
     Indication: Rheumatoid arthritis
     Route: 058
  93. ENBREL [Concomitant]
     Active Substance: ETANERCEPT
     Route: 058
  94. ENBREL [Concomitant]
     Active Substance: ETANERCEPT
  95. ENBREL [Concomitant]
     Active Substance: ETANERCEPT
     Route: 058
  96. ENBREL [Concomitant]
     Active Substance: ETANERCEPT
     Route: 058
  97. ERELZI [Concomitant]
     Active Substance: ETANERCEPT-SZZS
     Indication: Rheumatoid arthritis
  98. ERGOCALCIFEROL [Concomitant]
     Active Substance: ERGOCALCIFEROL
     Indication: Rheumatoid arthritis
  99. FLUMETHASONE [Concomitant]
     Active Substance: FLUMETHASONE
     Indication: Product used for unknown indication
  100. FLUMETHASONE PIVALATE [Concomitant]
     Active Substance: FLUMETHASONE PIVALATE
     Indication: Product used for unknown indication
     Route: 003
  101. FLUMETHASONE PIVALATE [Concomitant]
     Active Substance: FLUMETHASONE PIVALATE
  102. FOLIC ACID [Concomitant]
     Active Substance: FOLIC ACID
     Indication: Rheumatoid arthritis
     Route: 048
  103. FOLIC ACID [Concomitant]
     Active Substance: FOLIC ACID
     Route: 048
  104. FOLIC ACID [Concomitant]
     Active Substance: FOLIC ACID
     Route: 058
  105. FOLIC ACID [Concomitant]
     Active Substance: FOLIC ACID
     Route: 048
  106. FOLIC ACID [Concomitant]
     Active Substance: FOLIC ACID
  107. FOLIC ACID [Concomitant]
     Active Substance: FOLIC ACID
  108. FOLIC ACID [Concomitant]
     Active Substance: FOLIC ACID
  109. FOLIC ACID [Concomitant]
     Active Substance: FOLIC ACID
     Route: 048
  110. FOSAMAX [Concomitant]
     Active Substance: ALENDRONATE SODIUM
     Indication: Rheumatoid arthritis
     Route: 016
  111. FOSAMAX [Concomitant]
     Active Substance: ALENDRONATE SODIUM
     Route: 048
  112. FOSAMAX [Concomitant]
     Active Substance: ALENDRONATE SODIUM
     Route: 058
  113. FOSAMAX [Concomitant]
     Active Substance: ALENDRONATE SODIUM
     Route: 005
  114. GOLD [Concomitant]
     Active Substance: GOLD
     Indication: Product used for unknown indication
  115. HAIR KERATIN AMINO ACIDS GOLD COMPLEX [Concomitant]
     Active Substance: HAIR KERATIN AMINO ACIDS GOLD COMPLEX
     Indication: Product used for unknown indication
  116. GOLD SODIUM THIOMALATE [Concomitant]
     Active Substance: GOLD SODIUM THIOMALATE
     Indication: Product used for unknown indication
  117. GOLIMUMAB [Concomitant]
     Active Substance: GOLIMUMAB
     Indication: Rheumatoid arthritis
  118. GOLIMUMAB [Concomitant]
     Active Substance: GOLIMUMAB
  119. HUMIRA [Concomitant]
     Active Substance: ADALIMUMAB
     Indication: Rheumatoid arthritis
     Route: 058
  120. HUMIRA [Concomitant]
     Active Substance: ADALIMUMAB
  121. HUMIRA [Concomitant]
     Active Substance: ADALIMUMAB
     Route: 058
  122. HUMIRA [Concomitant]
     Active Substance: ADALIMUMAB
  123. HYDROCORTISONE [Concomitant]
     Active Substance: HYDROCORTISONE
     Indication: Rheumatoid arthritis
  124. HYDROCORTISONE [Concomitant]
     Active Substance: HYDROCORTISONE
  125. HYDROCORTISONE BUTYRATE [Concomitant]
     Active Substance: HYDROCORTISONE BUTYRATE
     Indication: Product used for unknown indication
  126. HYDROXYCHLOROQUINE SULFATE [Concomitant]
     Active Substance: HYDROXYCHLOROQUINE SULFATE
     Indication: Rheumatoid arthritis
     Route: 048
  127. HYDROXYCHLOROQUINE SULFATE [Concomitant]
     Active Substance: HYDROXYCHLOROQUINE SULFATE
     Route: 048
  128. HYDROXYCHLOROQUINE SULFATE [Concomitant]
     Active Substance: HYDROXYCHLOROQUINE SULFATE
     Route: 058
  129. HYDROXYCHLOROQUINE SULFATE [Concomitant]
     Active Substance: HYDROXYCHLOROQUINE SULFATE
  130. HYDROXYCHLOROQUINE SULFATE [Concomitant]
     Active Substance: HYDROXYCHLOROQUINE SULFATE
  131. HYDROXYCHLOROQUINE SULFATE [Concomitant]
     Active Substance: HYDROXYCHLOROQUINE SULFATE
  132. INFLIXIMAB [Concomitant]
     Active Substance: INFLIXIMAB
     Indication: Rheumatoid arthritis
     Route: 042
  133. INFLIXIMAB [Concomitant]
     Active Substance: INFLIXIMAB
     Route: 042
  134. ISOPROPYL ALCOHOL [Concomitant]
     Active Substance: ISOPROPYL ALCOHOL
     Indication: Product used for unknown indication
  135. KEVZARA [Concomitant]
     Active Substance: SARILUMAB
     Indication: Product used for unknown indication
  136. LAMICTAL [Concomitant]
     Active Substance: LAMOTRIGINE
     Indication: Product used for unknown indication
     Route: 048
  137. LAMICTAL [Concomitant]
     Active Substance: LAMOTRIGINE
     Route: 048
  138. LAMICTAL [Concomitant]
     Active Substance: LAMOTRIGINE
     Route: 048
  139. LEFLUNOMIDE [Concomitant]
     Active Substance: LEFLUNOMIDE
     Indication: Rheumatoid arthritis
  140. LEFLUNOMIDE [Concomitant]
     Active Substance: LEFLUNOMIDE
  141. LEFLUNOMIDE [Concomitant]
     Active Substance: LEFLUNOMIDE
     Route: 048
  142. LEFLUNOMIDE [Concomitant]
     Active Substance: LEFLUNOMIDE
  143. MEGLUMINE [Concomitant]
     Active Substance: MEGLUMINE
     Indication: Rheumatoid arthritis
     Route: 042
  144. METHOTREXATE [Concomitant]
     Active Substance: METHOTREXATE
     Indication: Rheumatoid arthritis
     Route: 048
  145. METHOTREXATE [Concomitant]
     Active Substance: METHOTREXATE
     Route: 048
  146. METHOTREXATE [Concomitant]
     Active Substance: METHOTREXATE
     Route: 058
  147. METHOTREXATE [Concomitant]
     Active Substance: METHOTREXATE
     Route: 048
  148. METHOTREXATE [Concomitant]
     Active Substance: METHOTREXATE
     Route: 048
  149. METHOTREXATE [Concomitant]
     Active Substance: METHOTREXATE
     Route: 058
  150. METHOTREXATE [Concomitant]
     Active Substance: METHOTREXATE
     Route: 048
  151. METHOTREXATE [Concomitant]
     Active Substance: METHOTREXATE
  152. METHOTREXATE [Concomitant]
     Active Substance: METHOTREXATE
  153. METHOTREXATE [Concomitant]
     Active Substance: METHOTREXATE
  154. METHOTREXATE [Concomitant]
     Active Substance: METHOTREXATE
     Route: 016
  155. METHOTREXATE [Concomitant]
     Active Substance: METHOTREXATE
     Route: 048
  156. METHOTREXATE [Concomitant]
     Active Substance: METHOTREXATE
  157. METHOTREXATE [Concomitant]
     Active Substance: METHOTREXATE
     Route: 058
  158. METHYLPREDNISOLONE ACETATE [Concomitant]
     Active Substance: METHYLPREDNISOLONE ACETATE
     Indication: Product used for unknown indication
  159. METHYLPREDNISOLONE ACETATE [Concomitant]
     Active Substance: METHYLPREDNISOLONE ACETATE
  160. MINOCYCLINE [Concomitant]
     Active Substance: MINOCYCLINE HYDROCHLORIDE
     Indication: Rheumatoid arthritis
  161. MINOCYCLINE [Concomitant]
     Active Substance: MINOCYCLINE HYDROCHLORIDE
  162. MINOCYCLINE HYDROCHLORIDE [Concomitant]
     Active Substance: MINOCYCLINE HYDROCHLORIDE
     Indication: Rheumatoid arthritis
  163. MYOCHRYSINE [Concomitant]
     Active Substance: GOLD SODIUM THIOMALATE
     Indication: Rheumatoid arthritis
     Route: 030
  164. MYRBETRIQ [Concomitant]
     Active Substance: MIRABEGRON
     Indication: Product used for unknown indication
  165. MYRBETRIQ [Concomitant]
     Active Substance: MIRABEGRON
  166. NAPROSYN [Concomitant]
     Active Substance: NAPROXEN
     Indication: Product used for unknown indication
  167. NAPROXEN [Concomitant]
     Active Substance: NAPROXEN
     Indication: Product used for unknown indication
  168. NAPROXEN SODIUM [Concomitant]
     Active Substance: NAPROXEN SODIUM
     Indication: Rheumatoid arthritis
  169. NICOTINAMIDE [Concomitant]
     Active Substance: NIACINAMIDE
     Indication: Product used for unknown indication
  170. NUCALA [Concomitant]
     Active Substance: MEPOLIZUMAB
     Indication: Product used for unknown indication
  171. OTEZLA [Concomitant]
     Active Substance: APREMILAST
     Indication: Rheumatoid arthritis
     Route: 048
  172. OXYCODONE [Concomitant]
     Active Substance: OXYCODONE
     Indication: Product used for unknown indication
  173. OXYCODONE TEREPHTHALATE [Concomitant]
     Active Substance: OXYCODONE TEREPHTHALATE
     Indication: Product used for unknown indication
  174. PERIOGARD [Concomitant]
     Active Substance: CHLORHEXIDINE GLUCONATE
     Indication: Product used for unknown indication
     Route: 002
  175. PERIOGARD [Concomitant]
     Active Substance: CHLORHEXIDINE GLUCONATE
  176. PHENYLEPHRINE HYDROCHLORIDE [Concomitant]
     Active Substance: PHENYLEPHRINE HYDROCHLORIDE
     Indication: Rheumatoid arthritis
  177. PHTHALYLSULFATHIAZOLE [Concomitant]
     Active Substance: PHTHALYLSULFATHIAZOLE
     Route: 048
  178. PHTHALYLSULFATHIAZOLE [Concomitant]
     Active Substance: PHTHALYLSULFATHIAZOLE
     Route: 048
  179. PHTHALYLSULFATHIAZOLE [Concomitant]
     Active Substance: PHTHALYLSULFATHIAZOLE
     Route: 058
  180. PHTHALYLSULFATHIAZOLE [Concomitant]
     Active Substance: PHTHALYLSULFATHIAZOLE
     Route: 048
  181. PREDNISONE [Concomitant]
     Active Substance: PREDNISONE
     Indication: Rheumatoid arthritis
     Route: 048
  182. PREDNISONE [Concomitant]
     Active Substance: PREDNISONE
     Route: 048
  183. PREDNISONE [Concomitant]
     Active Substance: PREDNISONE
  184. PREDNISONE [Concomitant]
     Active Substance: PREDNISONE
     Route: 048
  185. PREDNISONE [Concomitant]
     Active Substance: PREDNISONE
     Route: 048
  186. PREDNISONE [Concomitant]
     Active Substance: PREDNISONE
     Route: 048
  187. PREDNISONE [Concomitant]
     Active Substance: PREDNISONE
  188. PSEUDOEPHEDRINE [Concomitant]
     Active Substance: PSEUDOEPHEDRINE
     Indication: Product used for unknown indication
  189. PSEUDOEPHEDRINE [Concomitant]
     Active Substance: PSEUDOEPHEDRINE
  190. PSEUDOEPHEDRINE [Concomitant]
     Active Substance: PSEUDOEPHEDRINE
  191. PSEUDOEPHEDRINE [Concomitant]
     Active Substance: PSEUDOEPHEDRINE
  192. RAMIPRIL [Concomitant]
     Active Substance: RAMIPRIL
     Indication: Rheumatoid arthritis
     Route: 016
  193. RAMIPRIL [Concomitant]
     Active Substance: RAMIPRIL
     Route: 042
  194. RAMIPRIL [Concomitant]
     Active Substance: RAMIPRIL
  195. RANITIDINE [Concomitant]
     Active Substance: RANITIDINE
     Indication: Product used for unknown indication
  196. RANITIDINE HYDROCHLORIDE [Concomitant]
     Active Substance: RANITIDINE HYDROCHLORIDE
     Indication: Product used for unknown indication
  197. CETIRIZINE HYDROCHLORIDE [Concomitant]
     Active Substance: CETIRIZINE HYDROCHLORIDE
     Indication: Rheumatoid arthritis
     Route: 048
  198. CETIRIZINE HYDROCHLORIDE [Concomitant]
     Active Substance: CETIRIZINE HYDROCHLORIDE
     Route: 048
  199. CETIRIZINE HYDROCHLORIDE [Concomitant]
     Active Substance: CETIRIZINE HYDROCHLORIDE
  200. CETIRIZINE HYDROCHLORIDE [Concomitant]
     Active Substance: CETIRIZINE HYDROCHLORIDE
     Route: 016
  201. CETIRIZINE HYDROCHLORIDE [Concomitant]
     Active Substance: CETIRIZINE HYDROCHLORIDE
     Route: 048
  202. CETIRIZINE HYDROCHLORIDE [Concomitant]
     Active Substance: CETIRIZINE HYDROCHLORIDE
     Route: 048
  203. CETIRIZINE HYDROCHLORIDE [Concomitant]
     Active Substance: CETIRIZINE HYDROCHLORIDE
  204. CETIRIZINE HYDROCHLORIDE [Concomitant]
     Active Substance: CETIRIZINE HYDROCHLORIDE
  205. CETIRIZINE HYDROCHLORIDE [Concomitant]
     Active Substance: CETIRIZINE HYDROCHLORIDE
  206. CETIRIZINE HYDROCHLORIDE [Concomitant]
     Active Substance: CETIRIZINE HYDROCHLORIDE
  207. CETIRIZINE HYDROCHLORIDE [Concomitant]
     Active Substance: CETIRIZINE HYDROCHLORIDE
  208. CETIRIZINE HYDROCHLORIDE [Concomitant]
     Active Substance: CETIRIZINE HYDROCHLORIDE
     Route: 048
  209. CETIRIZINE HYDROCHLORIDE [Concomitant]
     Active Substance: CETIRIZINE HYDROCHLORIDE
  210. CETIRIZINE HYDROCHLORIDE\PSEUDOEPHEDRINE HYDROCHLORIDE [Concomitant]
     Active Substance: CETIRIZINE HYDROCHLORIDE\PSEUDOEPHEDRINE HYDROCHLORIDE
     Indication: Rheumatoid arthritis
  211. CETIRIZINE HYDROCHLORIDE\PSEUDOEPHEDRINE HYDROCHLORIDE [Concomitant]
     Active Substance: CETIRIZINE HYDROCHLORIDE\PSEUDOEPHEDRINE HYDROCHLORIDE
     Route: 042
  212. CETIRIZINE HYDROCHLORIDE\PSEUDOEPHEDRINE HYDROCHLORIDE [Concomitant]
     Active Substance: CETIRIZINE HYDROCHLORIDE\PSEUDOEPHEDRINE HYDROCHLORIDE
  213. CETIRIZINE HYDROCHLORIDE\PSEUDOEPHEDRINE HYDROCHLORIDE [Concomitant]
     Active Substance: CETIRIZINE HYDROCHLORIDE\PSEUDOEPHEDRINE HYDROCHLORIDE
  214. REMICADE [Concomitant]
     Active Substance: INFLIXIMAB
     Indication: Rheumatoid arthritis
     Route: 058
  215. REMICADE [Concomitant]
     Active Substance: INFLIXIMAB
  216. REMICADE [Concomitant]
     Active Substance: INFLIXIMAB
     Route: 050
  217. REMICADE [Concomitant]
     Active Substance: INFLIXIMAB
     Route: 042
  218. REMICADE [Concomitant]
     Active Substance: INFLIXIMAB
     Route: 042
  219. REMICADE [Concomitant]
     Active Substance: INFLIXIMAB
     Route: 058
  220. RIBOFLAVIN [Concomitant]
     Active Substance: RIBOFLAVIN
     Indication: Product used for unknown indication
  221. RITUXIMAB [Concomitant]
     Active Substance: RITUXIMAB
     Indication: Rheumatoid arthritis
  222. RITUXIMAB [Concomitant]
     Active Substance: RITUXIMAB
     Route: 042
  223. RITUXIMAB [Concomitant]
     Active Substance: RITUXIMAB
  224. RITUXIMAB [Concomitant]
     Active Substance: RITUXIMAB
  225. RITUXIMAB [Concomitant]
     Active Substance: RITUXIMAB
  226. RITUXIMAB [Concomitant]
     Active Substance: RITUXIMAB
     Route: 016
  227. RITUXIMAB [Concomitant]
     Active Substance: RITUXIMAB
     Route: 042
  228. RITUXIMAB [Concomitant]
     Active Substance: RITUXIMAB
     Route: 042
  229. RITUXIMAB [Concomitant]
     Active Substance: RITUXIMAB
     Route: 043
  230. RITUXIMAB [Concomitant]
     Active Substance: RITUXIMAB
     Route: 058
  231. SULFASALAZINE [Concomitant]
     Active Substance: SULFASALAZINE
     Indication: Rheumatoid arthritis
     Route: 048
  232. SIMPONI [Concomitant]
     Active Substance: GOLIMUMAB
     Indication: Rheumatoid arthritis
     Route: 058
  233. SIMPONI [Concomitant]
     Active Substance: GOLIMUMAB
     Route: 058
  234. SIMPONI [Concomitant]
     Active Substance: GOLIMUMAB
     Route: 058
  235. SIMPONI [Concomitant]
     Active Substance: GOLIMUMAB
     Route: 058
  236. SIMPONI [Concomitant]
     Active Substance: GOLIMUMAB
     Route: 058
  237. SIRUKUMAB [Concomitant]
     Active Substance: SIRUKUMAB
     Indication: Product used for unknown indication
  238. GOLD SODIUM THIOMALATE [Concomitant]
     Active Substance: GOLD SODIUM THIOMALATE
     Indication: Product used for unknown indication
     Route: 048
  239. GOLD SODIUM THIOMALATE [Concomitant]
     Active Substance: GOLD SODIUM THIOMALATE
     Route: 030
  240. STELARA [Concomitant]
     Active Substance: USTEKINUMAB
     Indication: Rheumatoid arthritis
     Route: 058
  241. STELARA [Concomitant]
     Active Substance: USTEKINUMAB
     Route: 058
  242. SULFAMETHOXAZOLE\TRIMETHOPRIM [Concomitant]
     Active Substance: SULFAMETHOXAZOLE\TRIMETHOPRIM
     Indication: Product used for unknown indication
  243. SULFASALAZINE [Concomitant]
     Active Substance: SULFASALAZINE
     Indication: Rheumatoid arthritis
     Route: 058
  244. SULFASALAZINE [Concomitant]
     Active Substance: SULFASALAZINE
  245. SULFASALAZINE [Concomitant]
     Active Substance: SULFASALAZINE
  246. SULFASALAZINE [Concomitant]
     Active Substance: SULFASALAZINE
  247. SULFASALAZINE [Concomitant]
     Active Substance: SULFASALAZINE
  248. SULFASALAZINE [Concomitant]
     Active Substance: SULFASALAZINE
     Route: 016
  249. SULFASALAZINE [Concomitant]
     Active Substance: SULFASALAZINE
     Route: 048
  250. SULFASALAZINE [Concomitant]
     Active Substance: SULFASALAZINE
  251. SULFASALAZINE [Concomitant]
     Active Substance: SULFASALAZINE
  252. SULFASALAZINE [Concomitant]
     Active Substance: SULFASALAZINE
  253. SULFASALAZINE [Concomitant]
     Active Substance: SULFASALAZINE
     Route: 048
  254. SULFASALAZINE [Concomitant]
     Active Substance: SULFASALAZINE
     Route: 048
  255. SULFASALAZINE [Concomitant]
     Active Substance: SULFASALAZINE
  256. SULFASALAZINE [Concomitant]
     Active Substance: SULFASALAZINE
  257. SULFASALAZINE [Concomitant]
     Active Substance: SULFASALAZINE
     Route: 048
  258. SULFASALAZINE [Concomitant]
     Active Substance: SULFASALAZINE
  259. SULFASALAZINE [Concomitant]
     Active Substance: SULFASALAZINE
     Route: 058
  260. SULFASALAZINE [Concomitant]
     Active Substance: SULFASALAZINE
     Route: 048
  261. SULFASALAZINE [Concomitant]
     Active Substance: SULFASALAZINE
     Route: 058
  262. SULFASALAZINE [Concomitant]
     Active Substance: SULFASALAZINE
     Route: 048
  263. SULFASALAZINE [Concomitant]
     Active Substance: SULFASALAZINE
     Route: 048
  264. THIAMINE HYDROCHLORIDE [Concomitant]
     Active Substance: THIAMINE HYDROCHLORIDE
     Indication: Product used for unknown indication
  265. TOPIRAMATE [Concomitant]
     Active Substance: TOPIRAMATE
     Indication: Migraine
  266. TOPIRAMATE [Concomitant]
     Active Substance: TOPIRAMATE
  267. TOPIRAMATE [Concomitant]
     Active Substance: TOPIRAMATE
  268. TRAMADOL HYDROCHLORIDE [Concomitant]
     Active Substance: TRAMADOL HYDROCHLORIDE
     Indication: Product used for unknown indication
  269. VITAMIN A [Concomitant]
     Active Substance: VITAMIN A
     Indication: Product used for unknown indication
  270. XELJANZ [Concomitant]
     Active Substance: TOFACITINIB CITRATE
     Indication: Rheumatoid arthritis
  271. XELJANZ [Concomitant]
     Active Substance: TOFACITINIB CITRATE
     Route: 048
  272. XELJANZ [Concomitant]
     Active Substance: TOFACITINIB CITRATE
     Route: 048
  273. XELJANZ [Concomitant]
     Active Substance: TOFACITINIB CITRATE
     Route: 048
  274. XELJANZ [Concomitant]
     Active Substance: TOFACITINIB CITRATE
  275. XELJANZ [Concomitant]
     Active Substance: TOFACITINIB CITRATE
  276. XELJANZ [Concomitant]
     Active Substance: TOFACITINIB CITRATE
     Route: 048
  277. XELJANZ [Concomitant]
     Active Substance: TOFACITINIB CITRATE
  278. XELJANZ [Concomitant]
     Active Substance: TOFACITINIB CITRATE
  279. ZINC [Concomitant]
     Active Substance: ZINC
     Indication: Rheumatoid arthritis

REACTIONS (1)
  - Death [Fatal]
